FAERS Safety Report 10218385 (Version 1)
Quarter: 2014Q2

REPORT INFORMATION
  Report Type: Spontaneous
  Country: CN (occurrence: CN)
  Receive Date: 20140605
  Receipt Date: 20140605
  Transmission Date: 20141212
  Serious: Yes (Other)
  Sender: FDA-Public Use
  Company Number: CN-ROCHE-1413296

PATIENT
  Age: 74 Year
  Sex: Male

DRUGS (3)
  1. ROCEPHIN [Suspect]
     Indication: INFECTION
     Route: 030
     Dates: start: 20131022, end: 20131023
  2. MANNITOL [Suspect]
     Indication: DEHYDRATION
     Route: 041
     Dates: start: 20131021, end: 20131024
  3. NALMEFENE HYDROCHLORIDE [Concomitant]
     Route: 041
     Dates: start: 20131022, end: 20131023

REACTIONS (1)
  - Renal failure acute [Unknown]
